FAERS Safety Report 9539214 (Version 2)
Quarter: 2013Q3

REPORT INFORMATION
  Report Type: Spontaneous
  Country: NL (occurrence: NL)
  Receive Date: 20130920
  Receipt Date: 20130924
  Transmission Date: 20140515
  Serious: Yes (Hospitalization)
  Sender: FDA-Public Use
  Company Number: NL-SANOFI-AVENTIS-2013SA091242

PATIENT
  Age: 68 Year
  Sex: Female
  Weight: 68 kg

DRUGS (3)
  1. FUROSEMIDE [Suspect]
     Indication: CARDIAC FAILURE
     Dosage: STRENGTH-40MG
     Route: 048
     Dates: start: 201209, end: 20130515
  2. PERINDOPRIL ERBUMINE [Suspect]
     Indication: CARDIAC FAILURE
     Dosage: STRENGTH: 8 MG
     Route: 048
     Dates: start: 201208, end: 20130517
  3. HYDROCHLOROTHIAZIDE [Suspect]
     Indication: HYPERTENSION
     Dosage: STRENGTH: 25 MG
     Route: 048
     Dates: start: 200808, end: 20130515

REACTIONS (3)
  - Fall [Recovered/Resolved with Sequelae]
  - Electrolyte imbalance [Recovered/Resolved with Sequelae]
  - Hyponatraemia [Recovered/Resolved with Sequelae]
